FAERS Safety Report 5198422-7 (Version None)
Quarter: 2006Q4

REPORT INFORMATION
  Report Type: 
  Country: None (occurrence: None)
  Receive Date: 20061229
  Receipt Date: 20061216
  Transmission Date: 20070319
  Serious: Yes (Hospitalization)
  Sender: FDA-Public Use
  Company Number: 2006PV027115

PATIENT
  Age: 60 Year
  Sex: Female
  Weight: 81.6475 kg

DRUGS (9)
  1. BYETTA [Suspect]
     Indication: DIABETES MELLITUS NON-INSULIN-DEPENDENT
     Dosage: SEE IMAGE
     Route: 058
     Dates: start: 20051001, end: 20061128
  2. BYETTA [Suspect]
     Indication: DIABETES MELLITUS NON-INSULIN-DEPENDENT
     Dosage: SEE IMAGE
     Route: 058
     Dates: start: 20061129
  3. PLAVIX [Concomitant]
  4. METOPROLOL SUCCINATE [Concomitant]
  5. LISINOPRIL [Concomitant]
  6. METFORMIN [Concomitant]
  7. PRANDIN [Concomitant]
  8. ACTOS [Concomitant]
  9. CELEXA [Concomitant]

REACTIONS (11)
  - ANGINA PECTORIS [None]
  - BLOOD GLUCOSE DECREASED [None]
  - BLOOD GLUCOSE INCREASED [None]
  - CORONARY ARTERY OCCLUSION [None]
  - DEHYDRATION [None]
  - FEELING COLD [None]
  - INJECTION SITE BRUISING [None]
  - INJECTION SITE INFECTION [None]
  - MYOCARDIAL INFARCTION [None]
  - NAUSEA [None]
  - RENAL IMPAIRMENT [None]
